FAERS Safety Report 16960059 (Version 1)
Quarter: 2019Q4

REPORT INFORMATION
  Report Type: Spontaneous
  Country: US (occurrence: US)
  Receive Date: 20191025
  Receipt Date: 20191025
  Transmission Date: 20200122
  Serious: No
  Sender: FDA-Public Use
  Company Number: US-SUNOVION-2019SUN004503

PATIENT
  Age: 70 Year
  Sex: Female

DRUGS (1)
  1. LATUDA [Suspect]
     Active Substance: LURASIDONE HYDROCHLORIDE
     Dosage: 120 MG
     Route: 048

REACTIONS (2)
  - Eye operation [Unknown]
  - Wrong technique in product usage process [Unknown]
